FAERS Safety Report 5398375-2 (Version None)
Quarter: 2007Q3

REPORT INFORMATION
  Report Type: 
  Country: None (occurrence: None)
  Receive Date: 20070726
  Receipt Date: 20070509
  Transmission Date: 20080115
  Serious: No
  Sender: FDA-Public Use
  Company Number: US-AMGEN-KDL224031

PATIENT
  Sex: Female
  Weight: 41.8 kg

DRUGS (4)
  1. PROCRIT [Suspect]
     Indication: ANAEMIA
     Dates: start: 20070330
  2. HYZAAR [Concomitant]
  3. PREDNISONE TAB [Concomitant]
  4. AMBIEN [Concomitant]

REACTIONS (2)
  - BLOOD THYROID STIMULATING HORMONE INCREASED [None]
  - JOINT SWELLING [None]
